FAERS Safety Report 8293267-3 (Version None)
Quarter: 2012Q2

REPORT INFORMATION
  Report Type: 
  Country: None (occurrence: None)
  Receive Date: 20120417
  Receipt Date: 20110307
  Transmission Date: 20120825
  Serious: No
  Sender: FDA-Public Use
  Company Number: US-ASTRAZENECA-2011SE12769

PATIENT
  Age: 53 Year
  Sex: Female
  Weight: 70.3 kg

DRUGS (14)
  1. LOMOTIL [Concomitant]
  2. BACLOFEN [Concomitant]
  3. FENTANYL-100 [Concomitant]
     Indication: BACK PAIN
  4. ESTROGEN [Concomitant]
  5. ACYCLOVIR [Concomitant]
  6. TOPAMAX [Concomitant]
  7. NEXIUM [Suspect]
     Indication: GASTROOESOPHAGEAL REFLUX DISEASE
     Route: 048
  8. FLEXERIL [Concomitant]
  9. VITAMIN TAB [Concomitant]
  10. ASPIRIN [Concomitant]
  11. CELEBREX [Concomitant]
  12. CYMBALTA [Concomitant]
  13. CIPROFLOXACIN HCL [Concomitant]
  14. CRESTOR [Concomitant]

REACTIONS (2)
  - HERPES ZOSTER [None]
  - HAEMOPTYSIS [None]
